FAERS Safety Report 8404326-6 (Version None)
Quarter: 2012Q2

REPORT INFORMATION
  Report Type: 
  Country: None (occurrence: None)
  Receive Date: 20120601
  Receipt Date: 20110817
  Transmission Date: 20120825
  Serious: Yes (Hospitalization)
  Sender: FDA-Public Use
  Company Number: DE-TEVA-296926GER

PATIENT
  Age: 83 Year
  Sex: Female
  Weight: 80 kg

DRUGS (1)
  1. SULFAMETHOXAZOLE AND TRIMETHOPRIM [Suspect]
     Indication: URINARY TRACT INFECTION
     Route: 048
     Dates: start: 20110125, end: 20110129

REACTIONS (4)
  - RENAL FAILURE [None]
  - HEPATIC FAILURE [None]
  - TOXIC EPIDERMAL NECROLYSIS [None]
  - PYREXIA [None]
